FAERS Safety Report 10089266 (Version 1)
Quarter: 2014Q2

REPORT INFORMATION
  Report Type: Spontaneous
  Country: ES (occurrence: ES)
  Receive Date: 20140421
  Receipt Date: 20140421
  Transmission Date: 20141212
  Serious: Yes (Death, Other)
  Sender: FDA-Public Use
  Company Number: ES-ELI_LILLY_AND_COMPANY-ES201404005593

PATIENT
  Sex: 0

DRUGS (1)
  1. GEMCITABINE HYDROCHLORIDE [Suspect]
     Indication: LUNG NEOPLASM MALIGNANT
     Dosage: UNK, OTHER
     Route: 065

REACTIONS (5)
  - Death [Fatal]
  - Febrile neutropenia [Unknown]
  - Pneumonia [Unknown]
  - Sepsis [Unknown]
  - Shock [Unknown]
